FAERS Safety Report 8017044-3 (Version None)
Quarter: 2012Q1

REPORT INFORMATION
  Report Type: 
  Country: None (occurrence: None)
  Receive Date: 20120102
  Receipt Date: 20111229
  Transmission Date: 20120608
  Serious: Yes (Other)
  Sender: FDA-Public Use
  Company Number: PHEH2005US01236

PATIENT
  Sex: Male
  Weight: 93.424 kg

DRUGS (32)
  1. CASODEX [Concomitant]
     Indication: PROSTATE CANCER METASTATIC
     Dosage: 50 MG, QD
     Route: 048
  2. ACYCLOVIR [Concomitant]
  3. VITAMIN B COMPLEX CAP [Concomitant]
  4. BENADRYL ^ACHE^ [Concomitant]
  5. KEFLEX [Concomitant]
  6. LEVAQUIN [Concomitant]
  7. HYZAAR [Concomitant]
  8. LORAZEPAM [Concomitant]
  9. ATIVAN [Concomitant]
  10. IBUPROFEN [Concomitant]
     Dosage: 800 MG,
  11. PENICILLIN VK [Concomitant]
  12. ZOLPIDEM [Concomitant]
     Dosage: 5 MG, QHS
  13. BUPROPION HCL [Concomitant]
  14. ZOCOR [Concomitant]
     Dosage: 40 MG, QD
     Route: 048
  15. REMERON [Concomitant]
     Dosage: 30 MG, QHS
     Route: 048
  16. TAXOL [Concomitant]
     Indication: PROSTATE CANCER METASTATIC
  17. WELLBUTRIN SR [Concomitant]
     Indication: DEPRESSION
     Dosage: 150 MG, BID
     Route: 048
  18. DECADRON [Concomitant]
     Dosage: 4 MG,
  19. LEXAPRO [Concomitant]
     Dosage: 10 MG, QD
     Route: 048
  20. COUMADIN [Concomitant]
     Dates: end: 20041005
  21. KAOPECTATE [Concomitant]
  22. LORTAB [Concomitant]
     Dosage: 5 MG,
  23. MULTI-VITAMINS [Concomitant]
  24. SIMVASTATIN [Concomitant]
  25. ZOMETA [Suspect]
     Indication: METASTASES TO BONE
     Dosage: 4 MG, Q3WK
     Dates: start: 20021029, end: 20030903
  26. ANTINEOPLASTIC AGENTS [Concomitant]
     Dates: end: 20060420
  27. LUPRON [Concomitant]
     Indication: PROSTATE CANCER METASTATIC
  28. ELIXIR PAREGORIQUE ^GIFRER^ [Concomitant]
  29. PERIDEX [Concomitant]
  30. VITAMIN C [Concomitant]
  31. CARBOPLATIN [Concomitant]
     Indication: PROSTATE CANCER METASTATIC
  32. ASPIRIN [Concomitant]

REACTIONS (24)
  - OSTEONECROSIS OF JAW [None]
  - JAW DISORDER [None]
  - NUCLEAR MAGNETIC RESONANCE IMAGING ABNORMAL [None]
  - EXOSTOSIS [None]
  - HYPERMETROPIA [None]
  - GASTROOESOPHAGEAL REFLUX DISEASE [None]
  - POOR VENOUS ACCESS [None]
  - NOCTURIA [None]
  - PRESBYOPIA [None]
  - DYSPNOEA [None]
  - CATARACT [None]
  - SWELLING [None]
  - ANXIETY [None]
  - INSOMNIA [None]
  - HYPERTENSION [None]
  - BONE DISORDER [None]
  - IMPAIRED HEALING [None]
  - FISTULA DISCHARGE [None]
  - FISTULA [None]
  - COLONIC POLYP [None]
  - HAEMORRHOIDS [None]
  - TACHYCARDIA [None]
  - HERPES ZOSTER [None]
  - BLOOD PRESSURE INCREASED [None]
